FAERS Safety Report 22362708 (Version 1)
Quarter: 2023Q2

REPORT INFORMATION
  Report Type: Spontaneous
  Country: US (occurrence: US)
  Receive Date: 20230524
  Receipt Date: 20230524
  Transmission Date: 20230721
  Serious: Yes (Hospitalization)
  Sender: FDA-Public Use
  Company Number: US-BAYER-2023A060401

PATIENT
  Age: 56 Year
  Sex: Male
  Weight: 114.74 kg

DRUGS (5)
  1. XARELTO [Suspect]
     Active Substance: RIVAROXABAN
     Indication: Product used for unknown indication
     Dosage: UNK
     Route: 048
  2. ADEMPAS [Suspect]
     Active Substance: RIOCIGUAT
     Indication: Pulmonary hypertension
     Dosage: UNK
     Route: 065
     Dates: start: 20220906
  3. ADEMPAS [Suspect]
     Active Substance: RIOCIGUAT
     Indication: Pulmonary arterial hypertension
     Dosage: 2.5 MG, TID
     Route: 048
  4. ADEMPAS [Suspect]
     Active Substance: RIOCIGUAT
     Indication: Pulmonary hypertension
     Dosage: 2.5 MG, TID
     Route: 048
  5. AMBRISENTAN [Concomitant]
     Active Substance: AMBRISENTAN
     Dosage: UNK

REACTIONS (8)
  - Pulmonary artery thrombosis [Unknown]
  - Productive cough [Unknown]
  - Haemoptysis [Unknown]
  - Overweight [Unknown]
  - Fatigue [Unknown]
  - Epistaxis [Unknown]
  - Nasal dryness [Unknown]
  - Nocturia [Unknown]

NARRATIVE: CASE EVENT DATE: 20230501
